FAERS Safety Report 4644531-8 (Version None)
Quarter: 2005Q2

REPORT INFORMATION
  Report Type: 
  Country: None (occurrence: None)
  Receive Date: 20050425
  Receipt Date: 20050425
  Transmission Date: 20051028
  Serious: Yes (Other)
  Sender: FDA-Public Use
  Company Number: None

PATIENT
  Age: 9 Year
  Sex: Female
  Weight: 38.1022 kg

DRUGS (2)
  1. NEURONTIN [Suspect]
     Indication: AFFECTIVE DISORDER
     Dosage: 100 MG 2 CAPS PO
     Route: 048
     Dates: start: 20050405
  2. MOTRIN [Suspect]
     Dosage: 400 MG PO
     Route: 048
     Dates: start: 20050405

REACTIONS (2)
  - ERYTHEMA [None]
  - PRURITUS [None]
